FAERS Safety Report 8409212-3 (Version None)
Quarter: 2012Q2

REPORT INFORMATION
  Report Type: 
  Country: None (occurrence: None)
  Receive Date: 20120604
  Receipt Date: 20120525
  Transmission Date: 20120825
  Serious: Yes (Hospitalization, Other)
  Sender: FDA-Public Use
  Company Number: CH-FRI-1000029760

PATIENT
  Sex: Female

DRUGS (3)
  1. ESCITALOPRAM [Suspect]
     Dosage: 20 MG
  2. BACTRIM [Suspect]
     Indication: URINARY TRACT INFECTION
     Dates: start: 20120217
  3. TRAZODONE HCL [Suspect]

REACTIONS (4)
  - PARAESTHESIA [None]
  - CHEST DISCOMFORT [None]
  - VISUAL IMPAIRMENT [None]
  - MYALGIA [None]
